FAERS Safety Report 24036663 (Version 1)
Quarter: 2024Q3

REPORT INFORMATION
  Report Type: Report from Study
  Country: US (occurrence: US)
  Receive Date: 20240701
  Receipt Date: 20240701
  Transmission Date: 20241017
  Serious: No
  Sender: ASTELLAS
  Company Number: US-ASTELLAS-2024US018276

PATIENT

DRUGS (5)
  1. AVACINCAPTAD PEGOL [Suspect]
     Active Substance: AVACINCAPTAD PEGOL
     Indication: Product used for unknown indication
     Dosage: 2 MG (0.1 ML OF 20MG/ML) MONTHLY (EVERY 28+-7 DAYS) (1 VIAL)
     Route: 050
  2. AVACINCAPTAD PEGOL [Suspect]
     Active Substance: AVACINCAPTAD PEGOL
     Indication: Product used for unknown indication
     Dosage: 2 MG (0.1 ML OF 20MG/ML) MONTHLY (EVERY 28+-7 DAYS) (1 VIAL)
     Route: 050
  3. AVACINCAPTAD PEGOL [Suspect]
     Active Substance: AVACINCAPTAD PEGOL
     Indication: Product used for unknown indication
     Dosage: 2 MG (0.1 ML OF 20MG/ML) MONTHLY (EVERY 28+-7 DAYS) (1 VIAL)
     Route: 050
  4. AVACINCAPTAD PEGOL [Suspect]
     Active Substance: AVACINCAPTAD PEGOL
     Indication: Product used for unknown indication
     Dosage: 2 MG (0.1 ML OF 20MG/ML) MONTHLY (EVERY 28+-7 DAYS) (1 VIAL)
     Route: 050
  5. AVACINCAPTAD PEGOL [Suspect]
     Active Substance: AVACINCAPTAD PEGOL
     Indication: Product used for unknown indication
     Dosage: 2 MG (0.1 ML OF 20MG/ML) MONTHLY (EVERY 28+-7 DAYS) (1 VIAL)
     Route: 050

REACTIONS (2)
  - Intercepted product preparation error [Unknown]
  - Device issue [Unknown]
